FAERS Safety Report 5711802-3 (Version None)
Quarter: 2008Q2

REPORT INFORMATION
  Report Type: 
  Country: None (occurrence: None)
  Receive Date: 20080416
  Receipt Date: 20080402
  Transmission Date: 20081010
  Serious: Yes (Other)
  Sender: FDA-Public Use
  Company Number: JPI-P-000915

PATIENT
  Age: 36 Year
  Sex: Female

DRUGS (3)
  1. XYREM [Suspect]
     Indication: APHASIA
     Dosage: SEE IMAGE, ORAL
     Route: 048
     Dates: start: 20061027, end: 20061126
  2. XYREM [Suspect]
     Indication: NARCOLEPSY
     Dosage: SEE IMAGE, ORAL
     Route: 048
     Dates: start: 20061027, end: 20061126
  3. MODAFINIL [Concomitant]

REACTIONS (33)
  - AGGRESSION [None]
  - ANXIETY [None]
  - ARTHRALGIA [None]
  - ASTHENIA [None]
  - BONE PAIN [None]
  - CATAPLEXY [None]
  - CHEST DISCOMFORT [None]
  - CONVERSION DISORDER [None]
  - CRYING [None]
  - DEPRESSION [None]
  - DYSPNOEA [None]
  - ENURESIS [None]
  - FATIGUE [None]
  - FEELING ABNORMAL [None]
  - FEELING HOT [None]
  - HEADACHE [None]
  - HYPERHIDROSIS [None]
  - INITIAL INSOMNIA [None]
  - INSOMNIA [None]
  - MIDDLE INSOMNIA [None]
  - MONOPLEGIA [None]
  - MYALGIA [None]
  - NAUSEA [None]
  - NERVOUSNESS [None]
  - NIGHT SWEATS [None]
  - NIGHTMARE [None]
  - PALPITATIONS [None]
  - PARAESTHESIA [None]
  - SOMNOLENCE [None]
  - SUICIDAL IDEATION [None]
  - TREMOR [None]
  - VERTIGO [None]
  - VISUAL DISTURBANCE [None]
